FAERS Safety Report 7260821-7 (Version None)
Quarter: 2011Q1

REPORT INFORMATION
  Report Type: 
  Country: None (occurrence: None)
  Receive Date: 20110130
  Receipt Date: 20101111
  Transmission Date: 20110831
  Serious: No
  Sender: FDA-Public Use
  Company Number: US-ABBOTT-10P-163-0685025-00

PATIENT
  Age: 34 Year
  Sex: Female

DRUGS (1)
  1. HUMIRA [Suspect]
     Indication: PSORIASIS
     Dates: start: 20090801

REACTIONS (9)
  - INJECTION SITE PAPULE [None]
  - INCORRECT DOSE ADMINISTERED [None]
  - RASH PUSTULAR [None]
  - PRURITUS [None]
  - RASH [None]
  - COLD SWEAT [None]
  - NERVOUSNESS [None]
  - INJECTION SITE HAEMATOMA [None]
  - WRONG TECHNIQUE IN DRUG USAGE PROCESS [None]
